FAERS Safety Report 6996620-0 (Version None)
Quarter: 2010Q3

REPORT INFORMATION
  Report Type: 
  Country: None (occurrence: None)
  Receive Date: 20100918
  Receipt Date: 20090520
  Transmission Date: 20110219
  Serious: No
  Sender: FDA-Public Use
  Company Number: US-WYE-H09458909

PATIENT
  Sex: Female
  Weight: 67.65 kg

DRUGS (5)
  1. PREMPRO [Suspect]
     Indication: MENOPAUSAL SYMPTOMS
     Dosage: 0.625MG/1.5 MG
     Route: 048
  2. PREMPRO [Suspect]
     Indication: OSTEOPOROSIS
  3. METHYCLOTHIAZIDE [Concomitant]
  4. POTASSIUM [Concomitant]
  5. FOSAMAX [Concomitant]

REACTIONS (1)
  - TREMOR [None]
